FAERS Safety Report 5132517-9 (Version None)
Quarter: 2006Q4

REPORT INFORMATION
  Report Type: 
  Country: None (occurrence: None)
  Receive Date: 20061020
  Receipt Date: 20061020
  Transmission Date: 20070319
  Serious: Yes (Hospitalization)
  Sender: FDA-Public Use
  Company Number: None

PATIENT
  Age: 43 Year
  Sex: Female
  Weight: 47.9 kg

DRUGS (2)
  1. CIPRO [Suspect]
     Indication: PSEUDOMONAS INFECTION
     Dosage: 200 MG IV Q 12 H
     Route: 042
     Dates: start: 20061010, end: 20061016
  2. MEROPENEM [Concomitant]

REACTIONS (1)
  - DIARRHOEA [None]
